FAERS Safety Report 12192773 (Version 2)
Quarter: 2016Q1

REPORT INFORMATION
  Report Type: Report from Study
  Country: US (occurrence: US)
  Receive Date: 20160318
  Receipt Date: 20160325
  Transmission Date: 20160526
  Serious: Yes (Hospitalization)
  Sender: FDA-Public Use
  Company Number: US-ELI_LILLY_AND_COMPANY-US201603003506

PATIENT
  Age: 65 Year
  Sex: Female

DRUGS (17)
  1. ATENOLOL. [Concomitant]
     Active Substance: ATENOLOL
  2. LEUCOVORIN                         /00566701/ [Concomitant]
     Active Substance: LEUCOVORIN
     Dosage: UNK
     Dates: start: 20160314
  3. SORAFENIB [Suspect]
     Active Substance: SORAFENIB
     Indication: BREAST CANCER METASTATIC
     Dosage: 400 MG, BID (DAYS 1-5 OF EACH 14 DAY CYCLE)
     Route: 048
     Dates: start: 20160303, end: 20160305
  4. FLUTICASONE [Concomitant]
     Active Substance: FLUTICASONE\FLUTICASONE PROPIONATE
  5. LORAZEPAM. [Concomitant]
     Active Substance: LORAZEPAM
  6. ONDANSETRON [Concomitant]
     Active Substance: ONDANSETRON
     Indication: PREMEDICATION
     Dosage: UNK, PRN EVERY 8 HOURS
     Route: 048
  7. TEMAZEPAM. [Concomitant]
     Active Substance: TEMAZEPAM
  8. PEMETREXED [Suspect]
     Active Substance: PEMETREXED
     Indication: BREAST CANCER METASTATIC
     Dosage: 950 MG, CYCLICAL (500 MGX1.9 M2), 1 EVERY 14 DAYS
     Route: 042
     Dates: start: 20160303
  9. FOLIC ACID. [Concomitant]
     Active Substance: FOLIC ACID
     Dosage: UNK
  10. OMEPRAZOLE. [Concomitant]
     Active Substance: OMEPRAZOLE
     Dosage: UNK
  11. ESCITALOPRAM [Concomitant]
     Active Substance: ESCITALOPRAM OXALATE
  12. CM PROMETHAZINE [Concomitant]
  13. ACETAMINOPHEN W/HYDROCODONE [Concomitant]
     Active Substance: ACETAMINOPHEN\HYDROCODONE
  14. BUPROPION. [Concomitant]
     Active Substance: BUPROPION
  15. HIDROCLOROTIAZ [Concomitant]
  16. MAGNESIUM                          /07349401/ [Concomitant]
  17. VITAMIN B12 [Concomitant]
     Active Substance: CYANOCOBALAMIN

REACTIONS (6)
  - Dehydration [Recovering/Resolving]
  - Depressed level of consciousness [Unknown]
  - Thrombocytopenia [Not Recovered/Not Resolved]
  - Vomiting [Recovering/Resolving]
  - Nausea [Recovering/Resolving]
  - Chest pain [Unknown]

NARRATIVE: CASE EVENT DATE: 201603
